FAERS Safety Report 9885432 (Version 8)
Quarter: 2014Q4

REPORT INFORMATION
  Report Type: Report from Study
  Country: DE (occurrence: DE)
  Receive Date: 20140210
  Receipt Date: 20141121
  Transmission Date: 20150529
  Serious: Yes (Hospitalization)
  Sender: FDA-Public Use
  Company Number: DE-BAYER-2014-020827

PATIENT
  Age: 61 Year
  Sex: Male
  Weight: 111 kg

DRUGS (18)
  1. LENOGRASTIM [Concomitant]
     Active Substance: LENOGRASTIM
     Indication: LEUKOPENIA
     Dosage: 33.6 DF, UNK
     Dates: start: 20130927, end: 20131007
  2. DARBEPOETIN ALFA [Concomitant]
     Active Substance: DARBEPOETIN ALFA
     Indication: ANAEMIA
     Dosage: 300 ?G, Q2WK
     Route: 058
     Dates: start: 20130906
  3. SWEATOSAN [Concomitant]
     Indication: HYPERHIDROSIS
     Dosage: 240 MG, QD
     Route: 048
     Dates: start: 20131009
  4. RED BLOOD CELLS, CONCENTRATED [Concomitant]
     Active Substance: HUMAN RED BLOOD CELL
     Indication: ANAEMIA
     Dosage: 2 DF, UNK
     Route: 042
     Dates: start: 20131105, end: 20131105
  5. RED BLOOD CELLS, CONCENTRATED [Concomitant]
     Active Substance: HUMAN RED BLOOD CELL
     Indication: ANAEMIA
     Dosage: 2 DF, UNK
     Route: 042
     Dates: start: 20131009, end: 20131009
  6. RADIUM-223 DICHLORIDE [Suspect]
     Active Substance: RADIUM RA-223 DICHLORIDE
     Indication: PROSTATE CANCER
     Dosage: 5680 KBQ, ONCE
     Route: 042
     Dates: start: 20130912, end: 20130912
  7. RADIUM-223 DICHLORIDE [Suspect]
     Active Substance: RADIUM RA-223 DICHLORIDE
     Indication: PROSTATE CANCER
     Dosage: 5678 KBQ, ONCE
     Route: 042
     Dates: start: 20140103, end: 20140103
  8. TRENANTONE [Concomitant]
     Active Substance: LEUPROLIDE ACETATE
     Indication: PROSTATE CANCER
     Dosage: 11.20 MG, Q3MON
     Dates: start: 201205
  9. RADIUM-223 DICHLORIDE [Suspect]
     Active Substance: RADIUM RA-223 DICHLORIDE
     Indication: PROSTATE CANCER
     Dosage: 5592 KBQ, ONCE
     Route: 042
     Dates: start: 20131107, end: 20131107
  10. VAGANTIN [Concomitant]
     Active Substance: METHANTHELINE BROMIDE
     Indication: HYPERHIDROSIS
     Dosage: 50 MG, BID
     Route: 048
     Dates: start: 2012, end: 20131008
  11. METOCLOPRAMIDE. [Concomitant]
     Active Substance: METOCLOPRAMIDE
     Indication: NAUSEA
     Dosage: 5 MG/ML, PRN
     Route: 048
     Dates: start: 20131007, end: 20131105
  12. RADIUM-223 DICHLORIDE [Suspect]
     Active Substance: RADIUM RA-223 DICHLORIDE
     Indication: PROSTATE CANCER
     Dosage: 5649 KBQ, ONCE
     Route: 042
     Dates: start: 20131009, end: 20131009
  13. RADIUM-223 DICHLORIDE [Suspect]
     Active Substance: RADIUM RA-223 DICHLORIDE
     Indication: PROSTATE CANCER
     Dosage: 5619 KBQ, ONCE
     Route: 042
     Dates: start: 20131205, end: 20131205
  14. ZOMETA [Concomitant]
     Active Substance: ZOLEDRONIC ACID
     Indication: PROSTATE CANCER
     Dosage: 4 MG, Q1MON
     Route: 042
     Dates: start: 2010
  15. FENTANYL CITRATE. [Concomitant]
     Active Substance: FENTANYL CITRATE
     Indication: PAIN
     Dosage: 0.1 MG, UNK
     Route: 048
     Dates: start: 2012
  16. ZOFRAN [Concomitant]
     Active Substance: ONDANSETRON HYDROCHLORIDE
     Indication: PROPHYLAXIS
     Dosage: 6 MG, BID
     Route: 048
     Dates: start: 2012
  17. ZYTIGA [Concomitant]
     Active Substance: ABIRATERONE ACETATE
     Indication: PROSTATE CANCER
     Dosage: 1 G, QD
     Dates: start: 201306
  18. PREDNISOLON [Concomitant]
     Active Substance: PREDNISOLONE
     Indication: PROSTATE CANCER
     Dosage: 5 MG, QD
     Route: 048
     Dates: start: 201306

REACTIONS (1)
  - Osteonecrosis of jaw [Recovered/Resolved]

NARRATIVE: CASE EVENT DATE: 20140203
